FAERS Safety Report 9648868 (Version 2)
Quarter: 2014Q1

REPORT INFORMATION
  Report Type: Spontaneous
  Country: US (occurrence: None)
  Receive Date: 20131018
  Receipt Date: 20140122
  Transmission Date: 20141002
  Serious: No
  Sender: FDA-Public Use
  Company Number: AEGR000147

PATIENT
  Age: 50 Year
  Sex: Male
  Weight: 79.4 kg

DRUGS (10)
  1. JUXTAPID [Suspect]
     Indication: HYPERCHOLESTEROLAEMIA
     Dosage: QHS
     Route: 048
     Dates: start: 2013, end: 2013
  2. FISH OIL [Concomitant]
  3. ATORVASTAIN [Concomitant]
  4. CALCIUM [Concomitant]
  5. ZETIA [Concomitant]
  6. MAGNESIUM [Concomitant]
  7. VITAMIN D [Concomitant]
  8. NIASPAN [Concomitant]
  9. ASPIRIN (ACETYLSALICYLIC ACID) [Concomitant]
  10. HYDROCODONE/APAP (HYDROCODONE BITARTRATE, PARACETAMOL) [Concomitant]

REACTIONS (5)
  - Off label use [None]
  - Inappropriate schedule of drug administration [None]
  - Medication error [None]
  - Diarrhoea [None]
  - Weight decreased [None]
